FAERS Safety Report 7426421-0 (Version None)
Quarter: 2011Q2

REPORT INFORMATION
  Report Type: 
  Country: None (occurrence: None)
  Receive Date: 20110420
  Receipt Date: 20110412
  Transmission Date: 20111010
  Serious: Yes (Hospitalization, Other)
  Sender: FDA-Public Use
  Company Number: FR-PFIZER INC-2011079839

PATIENT
  Age: 47 Year
  Sex: Male

DRUGS (4)
  1. ACTISKENAN [Suspect]
     Dosage: 20 DF, SINGLE
     Route: 048
     Dates: start: 20110108, end: 20110108
  2. EFFEXOR XR [Suspect]
     Dosage: 750 MG, SINGLE
     Route: 048
     Dates: start: 20110108, end: 20110108
  3. STILNOX [Suspect]
     Dosage: 14 DF, SINGLE
     Route: 048
     Dates: start: 20110108, end: 20110108
  4. ZYPREXA [Suspect]
     Dosage: 140 MG, SINGLE
     Route: 048
     Dates: start: 20110108, end: 20110108

REACTIONS (5)
  - BRADYCARDIA [None]
  - INTENTIONAL OVERDOSE [None]
  - PNEUMONIA ASPIRATION [None]
  - COMA [None]
  - RENAL FAILURE ACUTE [None]
